FAERS Safety Report 15617785 (Version 1)
Quarter: 2018Q4

REPORT INFORMATION
  Report Type: Spontaneous
  Country: US (occurrence: US)
  Receive Date: 20181113
  Receipt Date: 20181113
  Transmission Date: 20190205
  Serious: No
  Sender: FDA-Public Use
  Company Number: None

PATIENT
  Age: 31 Year
  Sex: Female
  Weight: 55.79 kg

DRUGS (1)
  1. MIRENA [Suspect]
     Active Substance: LEVONORGESTREL
     Indication: CONTRACEPTION

REACTIONS (15)
  - Fungal infection [None]
  - Haemorrhage [None]
  - Skin fissures [None]
  - Depression [None]
  - Anger [None]
  - Back pain [None]
  - Maternal exposure during breast feeding [None]
  - Lichen sclerosus [None]
  - Uterine pain [None]
  - Adnexa uteri pain [None]
  - Abdominal distension [None]
  - Exposure via breast milk [None]
  - Dyspareunia [None]
  - Vulvovaginal dryness [None]
  - Perineal disorder [None]

NARRATIVE: CASE EVENT DATE: 20181113
